FAERS Safety Report 16176528 (Version 1)
Quarter: 2019Q2

REPORT INFORMATION
  Report Type: Spontaneous
  Country: GB (occurrence: GB)
  Receive Date: 20190409
  Receipt Date: 20190409
  Transmission Date: 20190711
  Serious: Yes (Other)
  Sender: FDA-Public Use
  Company Number: PHHY2019GB079487

PATIENT
  Age: 34 Year
  Sex: Female
  Weight: 61.68 kg

DRUGS (2)
  1. LEVOTHYROXINE. [Concomitant]
     Active Substance: LEVOTHYROXINE
     Indication: PRODUCT USED FOR UNKNOWN INDICATION
     Dosage: UNK
     Route: 065
  2. CLARITHROMYCIN. [Suspect]
     Active Substance: CLARITHROMYCIN
     Indication: BACTERIAL INFECTION
     Dosage: 500 MG, UNK
     Route: 048
     Dates: start: 20190312, end: 20190315

REACTIONS (6)
  - Insomnia [Not Recovered/Not Resolved]
  - Crying [Unknown]
  - Anxiety [Not Recovered/Not Resolved]
  - Fear [Unknown]
  - Nervousness [Unknown]
  - Diarrhoea [Recovering/Resolving]

NARRATIVE: CASE EVENT DATE: 20190312
